FAERS Safety Report 6143206-6 (Version None)
Quarter: 2009Q2

REPORT INFORMATION
  Report Type: 
  Country: None (occurrence: None)
  Receive Date: 20090403
  Receipt Date: 20090324
  Transmission Date: 20091009
  Serious: Yes (Other)
  Sender: FDA-Public Use
  Company Number: JP-BRISTOL-MYERS SQUIBB COMPANY-14506190

PATIENT
  Age: 44 Year
  Sex: Female
  Weight: 84 kg

DRUGS (7)
  1. ABILIFY [Suspect]
     Indication: SCHIZOPHRENIA
     Dosage: 12MGQD,16-OCT-22OCT(7DAYS),24MGQD 23OCT-19NOV(28DAYS),30MGQD 20-NOV-17DEC08(28DAYS);30MG18DEC-ONG
     Route: 048
     Dates: start: 20081016
  2. ABILIFY [Suspect]
     Indication: SCHIZOPHRENIA
     Dosage: FORMULATION IS TAKEN AS POWDER.
     Route: 048
     Dates: start: 20081218
  3. ZYPREXA [Concomitant]
     Dosage: UNKNOWN-12NOV,13NOV,ON 29DEC08 2.5MG/D,INC TO 5MG 5JAN,INC TO 10MG 8JAN AND DEC TO 7.5MG ON 14JAN09
  4. DEPAKENE [Concomitant]
     Dates: end: 20081217
  5. BROTIZOLAM [Concomitant]
     Dates: end: 20081221
  6. PURSENNIDE [Concomitant]
  7. SELENICA-R [Concomitant]
     Route: 065
     Dates: start: 20081218

REACTIONS (2)
  - BLOOD CREATINE PHOSPHOKINASE INCREASED [None]
  - PSYCHIATRIC SYMPTOM [None]
